FAERS Safety Report 16099720 (Version 9)
Quarter: 2023Q1

REPORT INFORMATION
  Report Type: Report from Study
  Country: US (occurrence: US)
  Receive Date: 20190321
  Receipt Date: 20230228
  Transmission Date: 20230417
  Serious: Yes (Hospitalization, Other)
  Sender: FDA-Public Use
  Company Number: US-PFIZER INC-2019102690

PATIENT
  Age: 88 Year
  Sex: Female
  Weight: 86 kg

DRUGS (6)
  1. LIPITOR [Suspect]
     Active Substance: ATORVASTATIN CALCIUM
     Indication: Blood pressure abnormal
     Dosage: 40 MILLIGRAM, QD (40 MG, 1X/DAY)
     Route: 048
  2. LIPITOR [Suspect]
     Active Substance: ATORVASTATIN CALCIUM
     Indication: Stent placement
     Dosage: 80 MG, UNK
     Route: 065
     Dates: start: 2006
  3. LIPITOR [Suspect]
     Active Substance: ATORVASTATIN CALCIUM
     Indication: Blood cholesterol increased
     Dosage: 40 MILLIGRAM (DECREASED TO 40 MG ONCE A DAY (1/2 PILL) SEVERAL YEARS)
     Route: 048
  4. LIPITOR [Suspect]
     Active Substance: ATORVASTATIN CALCIUM
     Dosage: UNK, HALF TABLETS, SOMEDAYS TAKING WHOLES
     Route: 065
  5. PLAVIX [Concomitant]
     Active Substance: CLOPIDOGREL BISULFATE
     Indication: Product used for unknown indication
     Dosage: 75 MILLIGRAM
     Route: 065
  6. TOPROL XL [Concomitant]
     Active Substance: METOPROLOL SUCCINATE
     Indication: Blood pressure abnormal
     Dosage: UNK
     Route: 065

REACTIONS (14)
  - Blood pressure increased [Recovered/Resolved]
  - Cardiac disorder [Unknown]
  - Concussion [Unknown]
  - Fall [Unknown]
  - Lung neoplasm malignant [Unknown]
  - Brain neoplasm malignant [Unknown]
  - Weight decreased [Unknown]
  - Stress [Unknown]
  - Back injury [Unknown]
  - Weight increased [Unknown]
  - Hypotension [Unknown]
  - Body height decreased [Unknown]
  - Product dose omission issue [Unknown]
  - Intentional product misuse [Unknown]

NARRATIVE: CASE EVENT DATE: 20190514
